FAERS Safety Report 8721479 (Version 8)
Quarter: 2014Q2

REPORT INFORMATION
  Report Type: Report from Study
  Country: BR (occurrence: BR)
  Receive Date: 20120813
  Receipt Date: 20140626
  Transmission Date: 20141212
  Serious: Yes (Hospitalization, Other)
  Sender: FDA-Public Use
  Company Number: BR-ROCHE-1100206

PATIENT
  Age: 57 Year
  Sex: Female
  Weight: 78 kg

DRUGS (15)
  1. MABTHERA [Suspect]
     Indication: RHEUMATOID ARTHRITIS
     Dosage: MOST RECENT INFUSION ON 04/JUN/2014
     Route: 042
     Dates: start: 20110812
  2. MABTHERA [Suspect]
     Dosage: LATEST INJECTION WAS ON 07/AUG/2012.
     Route: 042
     Dates: start: 20110512
  3. CORTISONE [Suspect]
     Indication: PRODUCT USED FOR UNKNOWN INDICATION
     Dosage: 1 AMPOULE PER WEEK
     Route: 065
  4. PARACETAMOL [Concomitant]
  5. ROSUVASTATIN [Concomitant]
  6. LOSARTAN [Concomitant]
  7. ATENOLOL [Concomitant]
  8. AMLODIPIN [Concomitant]
  9. GABAPENTIN [Concomitant]
  10. CLOPIDOGREL [Concomitant]
  11. HYDROCHLOROTHIAZIDE [Concomitant]
  12. SALICYLIC ACID [Concomitant]
  13. PREDNISONE [Concomitant]
  14. OMEPRAZOLE [Concomitant]
  15. METFORMIN [Concomitant]
     Route: 065

REACTIONS (9)
  - Cardiac disorder [Unknown]
  - Plasma cell myeloma [Unknown]
  - Extremity necrosis [Unknown]
  - Neuropathy peripheral [Unknown]
  - Influenza [Recovering/Resolving]
  - Blood test abnormal [Not Recovered/Not Resolved]
  - Diabetes mellitus [Not Recovered/Not Resolved]
  - Rheumatoid arthritis [Unknown]
  - Nausea [Unknown]
